FAERS Safety Report 4382218-X (Version None)
Quarter: 2004Q2

REPORT INFORMATION
  Report Type: 
  Country: None (occurrence: None)
  Receive Date: 20040618
  Receipt Date: 20040618
  Transmission Date: 20050107
  Serious: Yes (Hospitalization)
  Sender: FDA-Public Use
  Company Number: None

PATIENT
  Age: 49 Year
  Sex: Male
  Weight: 90.9 kg

DRUGS (6)
  1. CYCLOPHOSHAMIDE [Suspect]
     Indication: NON-HODGKIN'S LYMPHOMA
     Dosage: 750 MG/M2 D1 (Q 21 DAY CYCLES)
     Dates: start: 20040319
  2. ADRIAMYCIN PFS [Suspect]
     Indication: NON-HODGKIN'S LYMPHOMA
     Dosage: 50 MG/M2 D1 (Q 21 DAY CYCLES)
     Dates: start: 20040319
  3. VINCRISTINE [Suspect]
     Indication: NON-HODGKIN'S LYMPHOMA
     Dosage: 1.4 MG/M2 D1(Q 21 DAY CYCLES)
     Dates: start: 20040319
  4. PREDNISONE [Suspect]
     Indication: NON-HODGKIN'S LYMPHOMA
     Dosage: 100 MG QD D1-5 (Q 21 DAY CYCLES)
     Dates: start: 20040319
  5. GEMCITABINE [Suspect]
     Indication: NON-HODGKIN'S LYMPHOMA
     Dosage: 750 MG/M2 D1,4 (Q 21 DAY CYCLES)
     Dates: start: 20040319
  6. NEULASTA [Suspect]
     Dosage: 6 MCG/M2 D5 (Q 21 DAY CYCLES)
     Dates: start: 20040323

REACTIONS (2)
  - ADHESION [None]
  - INTESTINAL OBSTRUCTION [None]
